FAERS Safety Report 20560494 (Version 1)
Quarter: 2022Q1

REPORT INFORMATION
  Report Type: Spontaneous
  Country: JP (occurrence: JP)
  Receive Date: 20220307
  Receipt Date: 20220307
  Transmission Date: 20220423
  Serious: Yes (Hospitalization)
  Sender: FDA-Public Use
  Company Number: JP-PFIZER INC-202200294729

PATIENT

DRUGS (2)
  1. ENBREL [Suspect]
     Active Substance: ETANERCEPT
     Indication: Rheumatoid arthritis
     Dosage: UNK UNK, WEEKLY
     Route: 065
  2. PROGRAF [Concomitant]
     Active Substance: TACROLIMUS
     Dosage: UNK, MONTHLY
     Route: 048

REACTIONS (5)
  - Dental cyst [Unknown]
  - Toothache [Unknown]
  - Osteoporosis [Unknown]
  - Off label use [Unknown]
  - Product use issue [Unknown]
